FAERS Safety Report 9299475 (Version 2)
Quarter: 2015Q3

REPORT INFORMATION
  Report Type: Spontaneous
  Country: CA (occurrence: CA)
  Receive Date: 20130521
  Receipt Date: 20150720
  Transmission Date: 20151125
  Serious: Yes (Hospitalization, Other)
  Sender: FDA-Public Use
  Company Number: CA-ROCHE-1226509

PATIENT
  Sex: Male

DRUGS (9)
  1. FLOVENT [Concomitant]
     Active Substance: FLUTICASONE PROPIONATE
  2. PREDNISONE. [Concomitant]
     Active Substance: PREDNISONE
  3. XOLAIR [Suspect]
     Active Substance: OMALIZUMAB
     Indication: ASTHMA
     Route: 058
     Dates: start: 20120827
  4. SPIRIVA [Concomitant]
     Active Substance: TIOTROPIUM BROMIDE MONOHYDRATE
  5. METHOTREXATE [Concomitant]
     Active Substance: METHOTREXATE
  6. ADVAIR HFA [Concomitant]
     Active Substance: FLUTICASONE PROPIONATE\SALMETEROL XINAFOATE
  7. PARIET [Concomitant]
     Active Substance: RABEPRAZOLE SODIUM
  8. NAPROSYN [Concomitant]
     Active Substance: NAPROXEN
     Route: 065
  9. PROSCAR [Concomitant]
     Active Substance: FINASTERIDE

REACTIONS (2)
  - Asthma [Unknown]
  - Aortic stenosis [Unknown]
